FAERS Safety Report 10716548 (Version 3)
Quarter: 2015Q4

REPORT INFORMATION
  Report Type: Spontaneous
  Country: US (occurrence: US)
  Receive Date: 20150116
  Receipt Date: 20151218
  Transmission Date: 20160304
  Serious: Yes (Hospitalization, Other)
  Sender: FDA-Public Use
  Company Number: US-BAYER-2015-004912

PATIENT
  Age: 23 Year
  Sex: Female
  Weight: 90.7 kg

DRUGS (8)
  1. UROSTATE [Concomitant]
     Active Substance: FLAVOXATE HYDROCHLORIDE
  2. TORADOL [Concomitant]
     Active Substance: KETOROLAC TROMETHAMINE
  3. MIRENA [Suspect]
     Active Substance: LEVONORGESTREL
     Indication: CONTRACEPTION
     Dosage: 20 MCG/24HR, CONT
     Route: 015
     Dates: start: 201301, end: 20140121
  4. MACROBID [Concomitant]
     Active Substance: NITROFURANTOIN\NITROFURANTOIN MONOHYDRATE
  5. PROMETHAZINE [Concomitant]
     Active Substance: PROMETHAZINE\PROMETHAZINE HYDROCHLORIDE
  6. MIRENA [Suspect]
     Active Substance: LEVONORGESTREL
     Indication: MENORRHAGIA
  7. PHENTERMINE. [Concomitant]
     Active Substance: PHENTERMINE
  8. NAPROSYN [Concomitant]
     Active Substance: NAPROXEN

REACTIONS (8)
  - Pregnancy with contraceptive device [None]
  - Embedded device [None]
  - Device issue [None]
  - Procedural pain [Not Recovered/Not Resolved]
  - Drug ineffective [None]
  - Emotional distress [None]
  - Injury [None]
  - Pain [None]

NARRATIVE: CASE EVENT DATE: 201303
